FAERS Safety Report 10301000 (Version 4)
Quarter: 2014Q4

REPORT INFORMATION
  Report Type: Report from Study
  Country: BE (occurrence: BE)
  Receive Date: 20140714
  Receipt Date: 20141016
  Transmission Date: 20150528
  Serious: Yes (Other)
  Sender: FDA-Public Use
  Company Number: BE-AMGEN-BELSP2014042904

PATIENT
  Age: 82 Year
  Sex: Male
  Weight: 71 kg

DRUGS (3)
  1. ASAFLOW [Concomitant]
     Active Substance: ASPIRIN
  2. NPLATE [Suspect]
     Active Substance: ROMIPLOSTIM
     Indication: IMMUNE THROMBOCYTOPENIC PURPURA
     Dosage: 0.5 ML, QWK
     Route: 058
     Dates: start: 20120215
  3. BURINEX [Concomitant]
     Active Substance: BUMETANIDE

REACTIONS (6)
  - Dyspnoea [Not Recovered/Not Resolved]
  - Nasopharyngitis [Recovered/Resolved]
  - Productive cough [Unknown]
  - Influenza [Unknown]
  - Cough [Unknown]
  - Productive cough [Recovering/Resolving]

NARRATIVE: CASE EVENT DATE: 201408
